FAERS Safety Report 8820890 (Version 1)
Quarter: 2012Q4

REPORT INFORMATION
  Report Type: 
  Country: BR (occurrence: BR)
  Receive Date: 20121002
  Receipt Date: 20121002
  Transmission Date: 20130627
  Serious: Yes (Death)
  Sender: FDA-Public Use
  Company Number: BR-PFIZER INC-2012241407

PATIENT

DRUGS (1)
  1. MISOPROSTOL [Suspect]
     Route: 064

REACTIONS (3)
  - Maternal exposure timing unspecified [Fatal]
  - Premature baby [Fatal]
  - Death neonatal [Fatal]
